FAERS Safety Report 6570158-7 (Version None)
Quarter: 2010Q1

REPORT INFORMATION
  Report Type: 
  Country: None (occurrence: None)
  Receive Date: 20100202
  Receipt Date: 20100202
  Transmission Date: 20100710
  Serious: Yes (Other)
  Sender: FDA-Public Use
  Company Number: None

PATIENT
  Sex: Male

DRUGS (1)
  1. NUBAIN [Suspect]
     Indication: PRURITUS
     Dosage: 1.5MG
     Dates: start: 20091211, end: 20091211

REACTIONS (10)
  - ABDOMINAL PAIN [None]
  - ANXIETY [None]
  - DIZZINESS [None]
  - HEADACHE [None]
  - HOSTILITY [None]
  - MUSCLE SPASMS [None]
  - NAUSEA [None]
  - PAIN [None]
  - PRESYNCOPE [None]
  - SINUS TACHYCARDIA [None]
